FAERS Safety Report 8484573 (Version 2)
Quarter: 2012Q4

REPORT INFORMATION
  Report Type: Report from Study
  Country: US (occurrence: US)
  Receive Date: 20120330
  Receipt Date: 20121115
  Transmission Date: 20130627
  Serious: Yes (Other)
  Sender: FDA-Public Use
  Company Number: US-JNJFOC-20120310601

PATIENT
  Age: 13 Year
  Sex: Male
  Weight: 57.2 kg

DRUGS (10)
  1. REMICADE [Suspect]
     Indication: INFLAMMATORY BOWEL DISEASE
     Route: 042
     Dates: start: 20110706
  2. REMICADE [Suspect]
     Indication: INFLAMMATORY BOWEL DISEASE
     Route: 042
     Dates: start: 20120112, end: 20120112
  3. AZATHIOPRINE [Concomitant]
  4. 5-ASA [Concomitant]
     Route: 048
  5. ABILIFY [Concomitant]
  6. STRATTERA [Concomitant]
  7. INTUNIV [Concomitant]
  8. FLAGYL [Concomitant]
  9. IRON [Concomitant]
     Route: 048
  10. PREDNISONE [Concomitant]

REACTIONS (1)
  - Infusion related reaction [Recovered/Resolved]
